FAERS Safety Report 9449797 (Version 2)
Quarter: 2013Q3

REPORT INFORMATION
  Report Type: Spontaneous
  Country: BE (occurrence: BE)
  Receive Date: 20130809
  Receipt Date: 20130830
  Transmission Date: 20140515
  Serious: Yes (Other)
  Sender: FDA-Public Use
  Company Number: BE-AMGEN-BELSP2013055539

PATIENT
  Age: 71 Year
  Sex: Female

DRUGS (4)
  1. PROLIA [Suspect]
     Indication: OSTEOPOROSIS POSTMENOPAUSAL
     Dosage: 60 MG/ML, Q6MO
     Route: 058
     Dates: start: 20111228, end: 20130710
  2. FORZATEN [Concomitant]
     Indication: HYPERTENSION
     Dosage: 40/50
  3. PANTOPRAZOLE [Concomitant]
     Indication: OESOPHAGITIS
     Dosage: 20
     Route: 048
  4. PIROXICAM [Concomitant]
     Route: 042

REACTIONS (3)
  - Femur fracture [Recovering/Resolving]
  - Stress fracture [Recovering/Resolving]
  - Pain [Recovering/Resolving]
